FAERS Safety Report 9800322 (Version 1)
Quarter: 2014Q1

REPORT INFORMATION
  Report Type: Spontaneous
  Country: US (occurrence: US)
  Receive Date: 20140106
  Receipt Date: 20140106
  Transmission Date: 20141002
  Serious: Yes (Death)
  Sender: FDA-Public Use
  Company Number: US-UCBSA-107903

PATIENT
  Age: 35 Year
  Sex: Male

DRUGS (8)
  1. ALPRAZOLAM [Suspect]
  2. OMEPRAZOLE [Suspect]
  3. PAROXETINE [Suspect]
  4. MORPHINE [Suspect]
  5. GABAPENTIN [Suspect]
  6. HYDROXYZINE [Suspect]
  7. TRAMADOL [Suspect]
  8. LORAZEPAM [Suspect]

REACTIONS (2)
  - Cardio-respiratory arrest [Fatal]
  - Toxicity to various agents [Fatal]
